FAERS Safety Report 4342194-2 (Version None)
Quarter: 2004Q1

REPORT INFORMATION
  Report Type: 
  Country: None (occurrence: None)
  Receive Date: 20040329
  Receipt Date: 20031205
  Transmission Date: 20041129
  Serious: No
  Sender: FDA-Public Use
  Company Number: USA031254075

PATIENT
  Age: 45 Year
  Sex: Female
  Weight: 59 kg

DRUGS (6)
  1. STRATTERA [Suspect]
     Indication: ATTENTION DEFICIT/HYPERACTIVITY DISORDER
     Dosage: 60 MG/DAY
     Dates: start: 20031117
  2. TRAZODONE HCL [Concomitant]
  3. ADDERALL 10 [Concomitant]
  4. ZYRTEC [Concomitant]
  5. VALIUM [Concomitant]
  6. BUSPAR [Concomitant]

REACTIONS (4)
  - DIZZINESS [None]
  - DRUG EFFECT DECREASED [None]
  - EARLY MORNING AWAKENING [None]
  - INSOMNIA [None]
